FAERS Safety Report 11044972 (Version 1)
Quarter: 2015Q2

REPORT INFORMATION
  Report Type: Spontaneous
  Country: US (occurrence: US)
  Receive Date: 20150417
  Receipt Date: 20150417
  Transmission Date: 20150821
  Serious: No
  Sender: FDA-Public Use
  Company Number: US-PFIZER INC-2015129270

PATIENT
  Age: 49 Year
  Sex: Male
  Weight: 113 kg

DRUGS (3)
  1. VIAGRA [Suspect]
     Active Substance: SILDENAFIL CITRATE
     Indication: PENILE VASCULAR DISORDER
     Dosage: UNK
     Dates: start: 201502
  2. VIAGRA [Suspect]
     Active Substance: SILDENAFIL CITRATE
     Dosage: UNK
     Dates: start: 201503
  3. VIAGRA [Suspect]
     Active Substance: SILDENAFIL CITRATE
     Indication: TESTICULAR PAIN
     Dosage: 50 MG, AS NEEDED
     Route: 048
     Dates: start: 201501

REACTIONS (5)
  - Pre-existing condition improved [Unknown]
  - Drug ineffective for unapproved indication [Not Recovered/Not Resolved]
  - Product quality issue [Unknown]
  - Therapeutic response unexpected [Unknown]
  - Suspected counterfeit product [Unknown]

NARRATIVE: CASE EVENT DATE: 201501
